FAERS Safety Report 7415979-3 (Version None)
Quarter: 2011Q2

REPORT INFORMATION
  Report Type: 
  Country: None (occurrence: None)
  Receive Date: 20110414
  Receipt Date: 20110405
  Transmission Date: 20111010
  Serious: Yes (Other)
  Sender: FDA-Public Use
  Company Number: US-CEPHALON-2011001609

PATIENT
  Sex: Male
  Weight: 67 kg

DRUGS (12)
  1. NUVIGIL [Suspect]
     Route: 048
     Dates: end: 20100101
  2. XENAZINE [Suspect]
     Indication: TARDIVE DYSKINESIA
     Dates: start: 20090901, end: 20091201
  3. XENAZINE [Suspect]
     Dates: start: 20091201
  4. CLONAZEPAM [Concomitant]
  5. ALLOPURINOL [Concomitant]
  6. DEXTROAMPHETAMINE SR [Concomitant]
  7. OMEPRAZOLE [Concomitant]
  8. AMLODIPINE [Concomitant]
  9. LEVOTHYROXINE [Concomitant]
  10. BACLOFEN [Concomitant]
  11. LYRICA [Concomitant]
  12. CYMBALTA [Concomitant]

REACTIONS (7)
  - DECREASED APPETITE [None]
  - ANGER [None]
  - PAIN [None]
  - NEUROPATHY PERIPHERAL [None]
  - DYSKINESIA [None]
  - NARCOLEPSY [None]
  - SEDATION [None]
